FAERS Safety Report 5880607-5 (Version None)
Quarter: 2008Q3

REPORT INFORMATION
  Report Type: 
  Country: None (occurrence: None)
  Receive Date: 20080912
  Receipt Date: 20080604
  Transmission Date: 20090109
  Serious: No
  Sender: FDA-Public Use
  Company Number: US-ABBOTT-08P-163-0454994-00

PATIENT
  Sex: Female
  Weight: 80.812 kg

DRUGS (7)
  1. HUMIRA [Suspect]
     Indication: RHEUMATOID ARTHRITIS
     Route: 058
     Dates: start: 20040101, end: 20080501
  2. VITAMIN TAB [Concomitant]
     Indication: DRUG USE FOR UNKNOWN INDICATION
  3. FISH OIL [Concomitant]
     Indication: DRUG USE FOR UNKNOWN INDICATION
  4. CALCIUM [Concomitant]
     Indication: DRUG USE FOR UNKNOWN INDICATION
  5. ERGOCALCIFEROL [Concomitant]
     Indication: DRUG USE FOR UNKNOWN INDICATION
  6. ZINGIBER OFFICINALE RHIZOME [Concomitant]
     Indication: DRUG USE FOR UNKNOWN INDICATION
  7. PREDNISONE TAB [Concomitant]
     Indication: DRUG USE FOR UNKNOWN INDICATION
     Dates: start: 20080501

REACTIONS (2)
  - EXCORIATION [None]
  - FALL [None]
